FAERS Safety Report 8667459 (Version 3)
Quarter: 2013Q3

REPORT INFORMATION
  Report Type: Spontaneous
  Country: US (occurrence: US)
  Receive Date: 20120717
  Receipt Date: 20130802
  Transmission Date: 20140515
  Serious: Yes (Hospitalization)
  Sender: FDA-Public Use
  Company Number: US-BAYER-2012-070326

PATIENT
  Age: 28 Year
  Sex: Female
  Weight: 158.73 kg

DRUGS (7)
  1. YAZ [Suspect]
     Indication: DYSFUNCTIONAL UTERINE BLEEDING
     Dosage: UNK
     Dates: start: 201006, end: 201007
  2. YAZ [Suspect]
     Indication: PREMENSTRUAL DYSPHORIC DISORDER
  3. PAXIL [Concomitant]
  4. GABAPENTIN [Concomitant]
  5. PLAVIX [Concomitant]
  6. LEVAQUIN [Concomitant]
  7. COLACE [Concomitant]

REACTIONS (3)
  - Cerebrovascular accident [None]
  - Ischaemic stroke [None]
  - Ischaemic cerebral infarction [None]
